FAERS Safety Report 5659179-6 (Version None)
Quarter: 2008Q1

REPORT INFORMATION
  Report Type: 
  Country: None (occurrence: None)
  Receive Date: 20080311
  Receipt Date: 20070723
  Transmission Date: 20080703
  Serious: No
  Sender: FDA-Public Use
  Company Number: US-BAYER-200711848BCC

PATIENT
  Age: 84 Year
  Sex: Female
  Weight: 95 kg

DRUGS (6)
  1. ALEVE [Suspect]
     Indication: BACK PAIN
     Dosage: TOTAL DAILY DOSE: 440 MG  UNIT DOSE: 220 MG
     Route: 048
  2. ALEVE [Suspect]
     Dosage: UNIT DOSE: 220 MG
     Route: 048
  3. CLONAZEPAM [Concomitant]
  4. LEVOTHYROXINE SODIUM [Concomitant]
  5. PAXIL [Concomitant]
  6. NORTRIPTYLINE HCL [Concomitant]

REACTIONS (4)
  - BURNING SENSATION [None]
  - MUSCULOSKELETAL DISCOMFORT [None]
  - PRURITUS [None]
  - SKIN IRRITATION [None]
